FAERS Safety Report 23427806 (Version 3)
Quarter: 2024Q3

REPORT INFORMATION
  Report Type: Report from Study
  Country: CA (occurrence: CA)
  Receive Date: 20240122
  Receipt Date: 20240814
  Transmission Date: 20241017
  Serious: Yes (Death, Hospitalization, Other)
  Sender: GLAXOSMITHKLINE
  Company Number: CA-GLAXOSMITHKLINE-CA2023158874

PATIENT

DRUGS (1)
  1. MEPOLIZUMAB [Suspect]
     Active Substance: MEPOLIZUMAB
     Indication: Asthma
     Dosage: 100 MG, Q4W
     Route: 058
     Dates: start: 20180917

REACTIONS (8)
  - Death [Fatal]
  - Pneumonia [Unknown]
  - Pulmonary oedema [Unknown]
  - Hospitalisation [Unknown]
  - Loss of personal independence in daily activities [Unknown]
  - Dyspnoea [Unknown]
  - Asthma [Unknown]
  - Cardiac disorder [Unknown]
